FAERS Safety Report 4801192-2 (Version None)
Quarter: 2005Q4

REPORT INFORMATION
  Report Type: 
  Country: None (occurrence: None)
  Receive Date: 20051011
  Receipt Date: 20050929
  Transmission Date: 20060501
  Serious: Yes (Death, Hospitalization)
  Sender: FDA-Public Use
  Company Number: 2005120472

PATIENT
  Age: 80 Year
  Sex: Female

DRUGS (7)
  1. ALDACTONE [Suspect]
     Indication: AORTIC VALVE STENOSIS
     Dosage: 25 MG (QD), ORAL
     Route: 048
     Dates: start: 20040126, end: 20050821
  2. ALDACTONE [Suspect]
     Indication: CARDIAC FAILURE
     Dosage: 25 MG (QD), ORAL
     Route: 048
     Dates: start: 20040126, end: 20050821
  3. LASIX [Concomitant]
  4. CAPTOPRIL [Concomitant]
  5. ULCERMIN (SUCRALFATE) [Concomitant]
  6. ISOSORBIDE DINITRATE [Concomitant]
  7. KAKKON-TO (HERBAL EXTRACTS NOS) [Concomitant]

REACTIONS (3)
  - CARDIO-RESPIRATORY ARREST [None]
  - HEPATITIS [None]
  - LIVER DISORDER [None]
